FAERS Safety Report 16671658 (Version 1)
Quarter: 2019Q3

REPORT INFORMATION
  Report Type: Other
  Country: GB (occurrence: GB)
  Receive Date: 20190806
  Receipt Date: 20190806
  Transmission Date: 20191004
  Serious: Yes (Disabling)
  Sender: FDA-Public Use
  Company Number: GB-LUPIN PHARMACEUTICALS INC.-2019-04862

PATIENT
  Age: 91 Year
  Sex: Female
  Weight: 55 kg

DRUGS (11)
  1. MEMANTINE HYDROCHLORIDE TABLETS [Suspect]
     Active Substance: MEMANTINE HYDROCHLORIDE
     Indication: PRODUCT USED FOR UNKNOWN INDICATION
     Dosage: 5 MILLIGRAM, QD (INITIALLY)
     Route: 065
     Dates: start: 20190613
  2. GALANTAMINE. [Concomitant]
     Active Substance: GALANTAMINE
     Indication: PRODUCT USED FOR UNKNOWN INDICATION
     Dosage: 1 DOSAGE FORM, QD
     Route: 065
     Dates: start: 20190411, end: 20190613
  3. BENDROFLUMETHIAZIDE [Concomitant]
     Active Substance: BENDROFLUMETHIAZIDE
     Indication: PRODUCT USED FOR UNKNOWN INDICATION
     Dosage: 1 DOSAGE FORM, QD (EACH MORNING)
     Route: 065
     Dates: start: 20190207, end: 20190510
  4. PARACETAMOL [Concomitant]
     Active Substance: ACETAMINOPHEN
     Indication: PRODUCT USED FOR UNKNOWN INDICATION
     Dosage: UNK, PRN (TAKE ONE OR TWO FOUR TIMES A DAY)
     Route: 065
     Dates: start: 20190529
  5. CASSIA SENNA [Concomitant]
     Active Substance: HERBALS\SENNOSIDES
     Indication: PRODUCT USED FOR UNKNOWN INDICATION
     Dosage: 2 DOSAGE FORM, QD (AT NIGHT)
     Route: 065
     Dates: start: 20190207
  6. ADCAL [CALCIUM CARBONATE] [Concomitant]
     Indication: PRODUCT USED FOR UNKNOWN INDICATION
     Route: 065
     Dates: start: 20190207
  7. LORAZEPAM. [Concomitant]
     Active Substance: LORAZEPAM
     Indication: PRODUCT USED FOR UNKNOWN INDICATION
     Dosage: UNK, PRN (TAKE HALF UP TO TWICE DAILY)
     Route: 065
     Dates: start: 20190613, end: 20190620
  8. SERTRALINE [Concomitant]
     Active Substance: SERTRALINE HYDROCHLORIDE
     Indication: PRODUCT USED FOR UNKNOWN INDICATION
     Dosage: 1 DOSAGE FORM, QD
     Route: 065
     Dates: start: 20190207
  9. LUVENTA [Concomitant]
     Indication: PRODUCT USED FOR UNKNOWN INDICATION
     Dosage: 1 DOSAGE FORM, QD
     Route: 065
     Dates: start: 20190207, end: 20190612
  10. LACTULOSE. [Concomitant]
     Active Substance: LACTULOSE
     Indication: PRODUCT USED FOR UNKNOWN INDICATION
     Dosage: 20 MILLILITER, QD
     Route: 065
     Dates: start: 20190207
  11. ZEROBASE [PARAFFIN] [Concomitant]
     Indication: DRY SKIN
     Dosage: UNK UNK, PRN (APPLY AS OFTEN AS NEEDED- USE PLENTY)
     Route: 061
     Dates: start: 20190508

REACTIONS (4)
  - Dyskinesia [Unknown]
  - Somnolence [Unknown]
  - Balance disorder [Unknown]
  - Yawning [Unknown]
